FAERS Safety Report 9133715 (Version 2)
Quarter: 2013Q4

REPORT INFORMATION
  Report Type: Spontaneous
  Country: GB (occurrence: GB)
  Receive Date: 20130302
  Receipt Date: 20131010
  Transmission Date: 20140711
  Serious: Yes (Life-Threatening)
  Sender: FDA-Public Use
  Company Number: GB-TEVA-388155ISR

PATIENT
  Age: 77 Year
  Sex: Male
  Weight: 106 kg

DRUGS (6)
  1. FINASTERIDE [Suspect]
     Indication: BENIGN PROSTATIC HYPERPLASIA
     Route: 048
     Dates: start: 20120618, end: 20120812
  2. TAMSULOSIN [Concomitant]
  3. LISINOPRIL [Concomitant]
  4. PIOGLITAZONE [Concomitant]
  5. METFORMIN [Concomitant]
  6. ATENOLOL [Concomitant]

REACTIONS (2)
  - Suicidal ideation [Recovered/Resolved]
  - Emotional poverty [Recovered/Resolved]
